FAERS Safety Report 19719569 (Version 5)
Quarter: 2025Q1

REPORT INFORMATION
  Report Type: Report from Study
  Country: KR (occurrence: KR)
  Receive Date: 20210819
  Receipt Date: 20250103
  Transmission Date: 20250409
  Serious: Yes (Hospitalization, Other)
  Sender: GLAXOSMITHKLINE
  Company Number: KR-TAKEDA-2021TJP073447

PATIENT
  Age: 58 Year
  Sex: Female
  Weight: 48.05 kg

DRUGS (21)
  1. NIRAPARIB [Suspect]
     Active Substance: NIRAPARIB
     Indication: Ovarian cancer recurrent
     Dosage: 200 MG, QD
     Route: 048
     Dates: start: 20210616, end: 20210802
  2. NIRAPARIB [Suspect]
     Active Substance: NIRAPARIB
     Indication: Malignant peritoneal neoplasm
  3. NIRAPARIB [Suspect]
     Active Substance: NIRAPARIB
     Indication: Fallopian tube cancer
  4. SILENOR [Concomitant]
     Active Substance: DOXEPIN HYDROCHLORIDE
     Indication: Insomnia
     Route: 048
     Dates: start: 20210121
  5. PROBIOTICS NOS [Concomitant]
     Active Substance: PROBIOTICS NOS
     Indication: Prophylaxis
     Dosage: UNK, BID
     Route: 048
     Dates: start: 20201011
  6. ZOLPIDEM TARTRATE [Concomitant]
     Active Substance: ZOLPIDEM TARTRATE
     Indication: Insomnia
     Dosage: 10 MG, QD
     Route: 048
     Dates: start: 20201009
  7. ATIVAN [Concomitant]
     Active Substance: LORAZEPAM
     Indication: Insomnia
     Route: 048
     Dates: start: 20201009
  8. FENOFIBRATE [Concomitant]
     Active Substance: FENOFIBRATE
     Indication: Hyperlipidaemia
     Dosage: 160 MG, QD
     Route: 048
     Dates: start: 20210514
  9. NASERON OD [Concomitant]
     Indication: Prophylaxis
     Route: 048
     Dates: start: 20210616
  10. ULTRACET ER SEMI [Concomitant]
     Indication: Myalgia
     Route: 048
     Dates: start: 20210630
  11. CEFTRIAXONE SODIUM [Concomitant]
     Active Substance: CEFTRIAXONE SODIUM
     Indication: Pyrexia
     Dosage: 2 G, QD
     Route: 042
     Dates: start: 20210805, end: 20210805
  12. PIPERACILLIN SODIUM\TAZOBACTAM SODIUM [Concomitant]
     Active Substance: PIPERACILLIN SODIUM\TAZOBACTAM SODIUM
     Indication: Pneumonia
     Dosage: 4.5 G, QID
     Route: 042
     Dates: start: 20210806
  13. TARASYN [Concomitant]
     Indication: Pyrexia
     Route: 042
     Dates: start: 20210806, end: 20210806
  14. LEVOFLOXACIN [Concomitant]
     Active Substance: LEVOFLOXACIN
     Indication: Pneumonia
     Dosage: UNK, QD
     Route: 042
     Dates: start: 20210806
  15. GASTER [Concomitant]
     Active Substance: FAMOTIDINE
     Indication: Prophylaxis
     Dosage: 20 MG, BID
     Route: 042
     Dates: start: 20210806, end: 20210806
  16. ONDANSETRON [Concomitant]
     Active Substance: ONDANSETRON
     Indication: Vomiting
     Route: 042
     Dates: start: 20210806
  17. COTRIM [Concomitant]
     Active Substance: SULFAMETHOXAZOLE\TRIMETHOPRIM
     Indication: Pneumonia
     Dosage: 3 DF, TID (3AMP, TID)
     Route: 042
     Dates: start: 20210813, end: 20210826
  18. DISOLRIN [Concomitant]
     Indication: Pneumonia
     Dosage: 32 MG, BID
     Route: 042
     Dates: start: 20210813, end: 20210826
  19. TAZOPERAN [Concomitant]
     Indication: Pneumonia
     Dosage: 1 DF, QID (1VIAL, QID)
     Route: 042
     Dates: start: 20210812, end: 20210815
  20. ALLELOCK [Concomitant]
     Active Substance: OLOPATADINE HYDROCHLORIDE
     Indication: Rosacea
     Dosage: 5 MG, BID
     Route: 048
     Dates: start: 20210825
  21. LEVOTHYROXINE SODIUM [Concomitant]
     Active Substance: LEVOTHYROXINE SODIUM
     Indication: Hypothyroidism
     Dosage: 25 ?G, QD
     Route: 048
     Dates: start: 20131030

REACTIONS (1)
  - Pneumonia [Recovered/Resolved]

NARRATIVE: CASE EVENT DATE: 20210805
